FAERS Safety Report 22105563 (Version 1)
Quarter: 2023Q1

REPORT INFORMATION
  Report Type: Spontaneous
  Country: GB (occurrence: GB)
  Receive Date: 20230317
  Receipt Date: 20230317
  Transmission Date: 20230417
  Serious: Yes (Hospitalization)
  Sender: FDA-Public Use
  Company Number: None

PATIENT
  Age: 78 Year
  Sex: Female
  Weight: 75 kg

DRUGS (1)
  1. TOLVAPTAN [Suspect]
     Active Substance: TOLVAPTAN
     Indication: Inappropriate antidiuretic hormone secretion
     Dosage: 7.5 MILLIGRAM, (TABLET), (NOCTE)
     Route: 065
     Dates: start: 20230224, end: 20230226

REACTIONS (1)
  - Hypertransaminasaemia [Not Recovered/Not Resolved]

NARRATIVE: CASE EVENT DATE: 20230225
